FAERS Safety Report 11540443 (Version 1)
Quarter: 2015Q3

REPORT INFORMATION
  Report Type: Spontaneous
  Country: US (occurrence: US)
  Receive Date: 20150923
  Receipt Date: 20150923
  Transmission Date: 20151125
  Serious: No
  Sender: FDA-Public Use
  Company Number: US-BEH-2014046435

PATIENT
  Sex: Female
  Weight: 90 kg

DRUGS (40)
  1. DIPHENHYDRAMINE. [Concomitant]
     Active Substance: DIPHENHYDRAMINE
  2. BUSPIRONE [Concomitant]
     Active Substance: BUSPIRONE HYDROCHLORIDE
  3. IPRAT-ALBUT [Concomitant]
  4. ZOFRAN [Concomitant]
     Active Substance: ONDANSETRON HYDROCHLORIDE
  5. ACCOLATE [Concomitant]
     Active Substance: ZAFIRLUKAST
  6. SODIUM CHLORIDE. [Concomitant]
     Active Substance: SODIUM CHLORIDE
  7. METOPROLOL [Concomitant]
     Active Substance: METOPROLOL
  8. HYDROCODONE BITARTRATE AND ACETAMINOPHEN [Concomitant]
     Active Substance: ACETAMINOPHEN\HYDROCODONE BITARTRATE
  9. SYMBICORT [Concomitant]
     Active Substance: BUDESONIDE\FORMOTEROL FUMARATE DIHYDRATE
  10. TOPAMAX [Concomitant]
     Active Substance: TOPIRAMATE
  11. FENTANYL. [Concomitant]
     Active Substance: FENTANYL
  12. DECADRON [Concomitant]
     Active Substance: DEXAMETHASONE
  13. NITROSTAT [Concomitant]
     Active Substance: NITROGLYCERIN
  14. PROMETHAZINE [Concomitant]
     Active Substance: PROMETHAZINE\PROMETHAZINE HYDROCHLORIDE
  15. ASPIRIN. [Concomitant]
     Active Substance: ASPIRIN
  16. RHINOCORT [Concomitant]
     Active Substance: BUDESONIDE
  17. DILTIAZEM [Concomitant]
     Active Substance: DILTIAZEM
  18. NORMAL SALINE [Concomitant]
     Active Substance: SODIUM CHLORIDE
  19. XANAX [Concomitant]
     Active Substance: ALPRAZOLAM
  20. PLAVIX [Concomitant]
     Active Substance: CLOPIDOGREL BISULFATE
  21. OXYGEN. [Concomitant]
     Active Substance: OXYGEN
  22. CYMBALTA [Concomitant]
     Active Substance: DULOXETINE HYDROCHLORIDE
  23. LOSARTAN POTASSIUM. [Concomitant]
     Active Substance: LOSARTAN POTASSIUM
  24. IBUPROFEN. [Concomitant]
     Active Substance: IBUPROFEN
  25. EPIPEN [Concomitant]
     Active Substance: EPINEPHRINE
  26. SEROQUEL [Concomitant]
     Active Substance: QUETIAPINE FUMARATE
  27. BUTALB-ACETAMIN-CAFF [Concomitant]
  28. NORTRIPTYLINE [Concomitant]
     Active Substance: NORTRIPTYLINE
  29. CHERATUSSIN [Concomitant]
     Active Substance: AMMONIUM CHLORIDE\DEXTROMETHORPHAN\SODIUM CITRATE
  30. PRIVIGEN [Suspect]
     Active Substance: HUMAN IMMUNOGLOBULIN G
     Indication: HYPOGAMMAGLOBULINAEMIA
     Route: 042
  31. ACETAMINOPHEN. [Concomitant]
     Active Substance: ACETAMINOPHEN
  32. LAMOTRIGINE. [Concomitant]
     Active Substance: LAMOTRIGINE
  33. FLONASE [Concomitant]
     Active Substance: FLUTICASONE PROPIONATE
  34. FLOVENT [Concomitant]
     Active Substance: FLUTICASONE PROPIONATE
  35. CARBAMAZEPINE. [Concomitant]
     Active Substance: CARBAMAZEPINE
  36. PROMETHAZINE-DM [Concomitant]
  37. LOVASTATIN. [Concomitant]
     Active Substance: LOVASTATIN
  38. CLONAZEPAM. [Concomitant]
     Active Substance: CLONAZEPAM
  39. PULMICORT TURBUHALER [Concomitant]
     Active Substance: BUDESONIDE
  40. ZANAFLEX [Concomitant]
     Active Substance: TIZANIDINE HYDROCHLORIDE

REACTIONS (2)
  - Nausea [Unknown]
  - Headache [Unknown]
